FAERS Safety Report 13057882 (Version 1)
Quarter: 2016Q4

REPORT INFORMATION
  Report Type: Spontaneous
  Country: US (occurrence: US)
  Receive Date: 20161223
  Receipt Date: 20161223
  Transmission Date: 20170207
  Serious: Yes (Hospitalization)
  Sender: FDA-Public Use
  Company Number: None

PATIENT
  Age: 55 Year
  Sex: Male
  Weight: 82.1 kg

DRUGS (2)
  1. CARBOPLATIN. [Suspect]
     Active Substance: CARBOPLATIN
     Dates: end: 20161206
  2. TAXOL [Suspect]
     Active Substance: PACLITAXEL
     Dates: end: 20161206

REACTIONS (2)
  - Fatigue [None]
  - Radiation dysphagia [None]

NARRATIVE: CASE EVENT DATE: 20161204
